FAERS Safety Report 8039396-0 (Version None)
Quarter: 2012Q1

REPORT INFORMATION
  Report Type: 
  Country: None (occurrence: None)
  Receive Date: 20120111
  Receipt Date: 20111213
  Transmission Date: 20120608
  Serious: No
  Sender: FDA-Public Use
  Company Number: US-AMGEN-USASP2011066432

PATIENT
  Age: 59 Year
  Sex: Female

DRUGS (1)
  1. ENBREL [Suspect]
     Indication: PSORIASIS
     Dosage: 50 MG, QWK
     Dates: start: 20070220

REACTIONS (12)
  - VOMITING [None]
  - INJECTION SITE REACTION [None]
  - SINUSITIS [None]
  - MOUTH ULCERATION [None]
  - FALL [None]
  - ARTHRALGIA [None]
  - NECK PAIN [None]
  - PAIN [None]
  - HEADACHE [None]
  - MYALGIA [None]
  - INJECTION SITE SWELLING [None]
  - INJECTION SITE ERYTHEMA [None]
